FAERS Safety Report 6013950-X (Version None)
Quarter: 2008Q4

REPORT INFORMATION
  Report Type: 
  Country: None (occurrence: None)
  Receive Date: 20081219
  Receipt Date: 20081210
  Transmission Date: 20090506
  Serious: Yes (Hospitalization)
  Sender: FDA-Public Use
  Company Number: SE-MERCK-0812SWE00008

PATIENT
  Age: 80 Year
  Sex: Male

DRUGS (12)
  1. COZAAR [Suspect]
     Indication: CARDIAC DISORDER
     Route: 048
     Dates: end: 20081025
  2. DIGOXIN [Suspect]
     Route: 048
     Dates: end: 20081025
  3. FUROSEMIDE [Suspect]
     Indication: CARDIAC FAILURE
     Route: 048
  4. BUDESONIDE AND FORMOTEROL FUMARATE [Concomitant]
     Route: 065
  5. TIOTROPIUM BROMIDE [Concomitant]
     Route: 065
  6. ACETYLCYSTEINE [Concomitant]
     Route: 065
  7. CITALOPRAM [Concomitant]
     Route: 065
  8. NITROGLYCERIN [Concomitant]
     Route: 065
  9. FOLIC ACID [Concomitant]
     Route: 065
  10. CYANOCOBALAMIN [Concomitant]
     Route: 065
  11. SPIRONOLACTONE [Concomitant]
     Route: 065
  12. BENSERAZIDE HYDROCHLORIDE AND LEVODOPA [Concomitant]
     Route: 065

REACTIONS (3)
  - BLOOD CREATININE INCREASED [None]
  - DIZZINESS [None]
  - HICCUPS [None]
